FAERS Safety Report 14790002 (Version 4)
Quarter: 2018Q2

REPORT INFORMATION
  Report Type: Report from Study
  Country: BR (occurrence: BR)
  Receive Date: 20180423
  Receipt Date: 20180504
  Transmission Date: 20180711
  Serious: Yes (Other)
  Sender: FDA-Public Use
  Company Number: PHHY2018BR066204

PATIENT
  Sex: Male
  Weight: 79 kg

DRUGS (3)
  1. TRAVATAN [Suspect]
     Active Substance: TRAVOPROST
     Indication: GLAUCOMA
  2. TRAVATAN [Suspect]
     Active Substance: TRAVOPROST
     Indication: CATARACT
     Dosage: 1 GTT, QHS (EACH EYES) (10 YEARS AGO)
     Route: 047
  3. TIMOLOL. [Suspect]
     Active Substance: TIMOLOL
     Indication: PRODUCT USED FOR UNKNOWN INDICATION
     Route: 065

REACTIONS (3)
  - Glaucoma [Unknown]
  - Cataract [Unknown]
  - Hypokinesia [Not Recovered/Not Resolved]
